FAERS Safety Report 9074733 (Version 2)
Quarter: 2013Q2

REPORT INFORMATION
  Report Type: Spontaneous
  Country: US (occurrence: US)
  Receive Date: 20130129
  Receipt Date: 20130507
  Transmission Date: 20140414
  Serious: Yes (Death, Hospitalization, Other)
  Sender: FDA-Public Use
  Company Number: US-ROCHE-1046918

PATIENT
  Sex: Male
  Weight: 54.48 kg

DRUGS (2)
  1. ACCUTANE [Suspect]
     Indication: ACNE
     Route: 065
     Dates: start: 199102, end: 199103
  2. ACCUTANE [Suspect]
     Route: 065
     Dates: start: 199102, end: 1995

REACTIONS (7)
  - Metastases to peritoneum [Fatal]
  - Colitis ulcerative [Unknown]
  - Inflammatory bowel disease [Unknown]
  - Cholangitis [Unknown]
  - Irritable bowel syndrome [Unknown]
  - Iron deficiency anaemia [Unknown]
  - Lip dry [Unknown]
